FAERS Safety Report 21316685 (Version 1)
Quarter: 2022Q3

REPORT INFORMATION
  Report Type: Spontaneous
  Country: US (occurrence: US)
  Receive Date: 20220911
  Receipt Date: 20220911
  Transmission Date: 20221027
  Serious: No
  Sender: FDA-Public Use
  Company Number: US-SA-SAC20220819000109

PATIENT
  Sex: Female

DRUGS (1)
  1. DUPIXENT [Suspect]
     Active Substance: DUPILUMAB
     Indication: Oesophagitis
     Dosage: 300 MG, QW
     Route: 058

REACTIONS (6)
  - Injection site rash [Unknown]
  - Injection site urticaria [Unknown]
  - Injection site irritation [Recovering/Resolving]
  - Petechiae [Unknown]
  - Rash pruritic [Unknown]
  - Product use in unapproved indication [Unknown]
